FAERS Safety Report 8822757 (Version 3)
Quarter: 2012Q4

REPORT INFORMATION
  Report Type: 
  Country: US (occurrence: US)
  Receive Date: 20121003
  Receipt Date: 20121217
  Transmission Date: 20130627
  Serious: No
  Sender: FDA-Public Use
  Company Number: US-VERTEX PHARMACEUTICAL INC.-2012-021241

PATIENT
  Age: 57 Year
  Sex: Male
  Weight: 68 kg

DRUGS (7)
  1. INCIVEK [Suspect]
     Indication: HEPATITIS C
     Dosage: 750 mg, tid
     Route: 048
     Dates: start: 20120727
  2. RIBAVIRIN [Suspect]
     Indication: HEPATITIS C
     Dosage: 600 mg am, 400 mg pm
     Route: 048
     Dates: start: 20120727
  3. PEGASYS [Suspect]
     Indication: HEPATITIS C
     Dosage: 180 ?g, qw
     Route: 058
     Dates: start: 20120727
  4. FLONASE [Concomitant]
     Dosage: 0.05 %, UNK
  5. NASAL SPRAY [Concomitant]
     Dosage: UNK, prn
  6. GNP SAW PALMETTO                       /00833501/ [Concomitant]
     Dosage: 160 mg, UNK
  7. SFT GEL [Concomitant]
     Dosage: UNK, bid

REACTIONS (14)
  - Hallucination [Unknown]
  - Depressed mood [Unknown]
  - Insomnia [Recovered/Resolved]
  - Anger [Unknown]
  - Bone pain [Unknown]
  - Headache [Not Recovered/Not Resolved]
  - Pain [Unknown]
  - Cough [Unknown]
  - Asthenia [Not Recovered/Not Resolved]
  - Rash [Recovered/Resolved]
  - Pruritus [Recovered/Resolved]
  - Diarrhoea [Recovered/Resolved]
  - Anorectal discomfort [Recovered/Resolved]
  - Nausea [Not Recovered/Not Resolved]
